FAERS Safety Report 14794303 (Version 2)
Quarter: 2018Q2

REPORT INFORMATION
  Report Type: Spontaneous
  Country: JP (occurrence: JP)
  Receive Date: 20180423
  Receipt Date: 20180522
  Transmission Date: 20180711
  Serious: Yes (Hospitalization)
  Sender: FDA-Public Use
  Company Number: JP-SHIONOGI, INC-2018000697

PATIENT
  Age: 68 Year
  Sex: Male

DRUGS (4)
  1. LOXOPROFEN [Concomitant]
     Active Substance: LOXOPROFEN
     Indication: CANCER PAIN
     Dosage: 180 MG, QD
     Route: 048
     Dates: start: 20180403, end: 20180409
  2. OXYCODONE [Concomitant]
     Active Substance: OXYCODONE
     Indication: CANCER PAIN
     Dosage: UNK
     Route: 048
     Dates: start: 20180403, end: 20180409
  3. SYMPROIC [Suspect]
     Active Substance: NALDEMEDINE
     Indication: CONSTIPATION
     Dosage: 0.2 MG, QD
     Route: 048
     Dates: start: 20180403, end: 20180409
  4. LANSOPRAZOLE. [Suspect]
     Active Substance: LANSOPRAZOLE
     Indication: PROPHYLAXIS
     Dosage: UNK
     Route: 048
     Dates: start: 20180403, end: 20180409

REACTIONS (1)
  - Hyponatraemic seizure [Recovering/Resolving]

NARRATIVE: CASE EVENT DATE: 20180409
